FAERS Safety Report 5058963-X (Version None)
Quarter: 2006Q3

REPORT INFORMATION
  Report Type: 
  Country: None (occurrence: None)
  Receive Date: 20060721
  Receipt Date: 20060505
  Transmission Date: 20061208
  Serious: Yes (Hospitalization)
  Sender: FDA-Public Use
  Company Number: TN-SANOFI-SYNTHELABO-A01200603572

PATIENT
  Age: 57 Year
  Sex: Male

DRUGS (4)
  1. AVASTIN [Concomitant]
     Indication: COLORECTAL CANCER METASTATIC
     Dosage: DOSE NOT SPECIFIED
     Route: 041
  2. FOLINIC ACID [Concomitant]
     Indication: COLORECTAL CANCER METASTATIC
     Dosage: DOSE NOT SPECIFIED
     Route: 041
  3. FLUOROURACIL [Concomitant]
     Indication: COLORECTAL CANCER METASTATIC
     Dosage: DOSE NOT SPECIFIED
     Route: 041
  4. ELOXATIN [Suspect]
     Route: 042
     Dates: start: 20060417, end: 20060417

REACTIONS (7)
  - BLOOD CREATININE INCREASED [None]
  - ELECTROLYTE IMBALANCE [None]
  - HAEMATURIA [None]
  - HYPERTENSION [None]
  - NEPHROPATHY TOXIC [None]
  - RENAL PAIN [None]
  - RENAL TUBULAR NECROSIS [None]
